FAERS Safety Report 4912765-0 (Version None)
Quarter: 2006Q1

REPORT INFORMATION
  Report Type: 
  Country: None (occurrence: None)
  Receive Date: 20060213
  Receipt Date: 20060202
  Transmission Date: 20060701
  Serious: Yes (Life-Threatening, Hospitalization)
  Sender: FDA-Public Use
  Company Number: 2005014074

PATIENT
  Age: 74 Year
  Sex: Female
  Weight: 68 kg

DRUGS (5)
  1. DIFLUCAN [Suspect]
     Indication: DIABETIC FOOT
     Dosage: 200 MG (200 MG, 1 IN 1 D),  ORAL
     Route: 048
     Dates: start: 20041117, end: 20041118
  2. DIFLUCAN [Suspect]
     Indication: FUNGAL INFECTION
     Dosage: 200 MG (200 MG, 1 IN 1 D),  ORAL
     Route: 048
     Dates: start: 20041117, end: 20041118
  3. BICLAR              (CLARITHROMYCIN) [Concomitant]
  4. DIAMICRON (GLICLAZIDE) [Concomitant]
  5. MERCED (MIOKAMYCIN) [Concomitant]

REACTIONS (1)
  - HYPOGLYCAEMIA [None]
